FAERS Safety Report 20160883 (Version 1)
Quarter: 2021Q4

REPORT INFORMATION
  Report Type: Spontaneous
  Country: US (occurrence: US)
  Receive Date: 20211208
  Receipt Date: 20211208
  Transmission Date: 20220304
  Serious: No
  Sender: FDA-Public Use
  Company Number: US-MYLANLABS-2021M1083087

PATIENT
  Sex: Male
  Weight: 99 kg

DRUGS (1)
  1. WIXELA INHUB [Suspect]
     Active Substance: FLUTICASONE PROPIONATE\SALMETEROL XINAFOATE
     Indication: Asthma
     Dosage: BID(1 PUFF, TWICE A DAY)
     Route: 055

REACTIONS (2)
  - Device mechanical issue [Not Recovered/Not Resolved]
  - Wrong technique in product usage process [Unknown]
